FAERS Safety Report 5054378-9 (Version None)
Quarter: 2006Q2

REPORT INFORMATION
  Report Type: 
  Country: None (occurrence: None)
  Receive Date: 20060616
  Receipt Date: 20060520
  Transmission Date: 20061013
  Serious: No
  Sender: FDA-Public Use
  Company Number: 222493

PATIENT
  Age: 66 Year
  Sex: Female

DRUGS (3)
  1. AVASTIN [Suspect]
     Indication: BREAST CANCER METASTATIC
     Dosage: Q3W
     Dates: start: 20051201
  2. ABRAXANE [Suspect]
     Indication: BREAST CANCER METASTATIC
     Dates: start: 20051201
  3. ZOMETA [Concomitant]

REACTIONS (2)
  - DYSARTHRIA [None]
  - SOMNOLENCE [None]
